FAERS Safety Report 4338277-3 (Version None)
Quarter: 2004Q2

REPORT INFORMATION
  Report Type: 
  Country: None (occurrence: None)
  Receive Date: 20040407
  Receipt Date: 20040324
  Transmission Date: 20050107
  Serious: Yes (Disabling)
  Sender: FDA-Public Use
  Company Number: GB-JNJFOC-20040203898

PATIENT
  Age: 32 Year
  Sex: Male
  Weight: 160 kg

DRUGS (2)
  1. RISPERDAL [Suspect]
     Indication: SCHIZOPHRENIA
     Dosage: 1 MG, 1 IN 1 DAY, ORAL
     Route: 048
     Dates: end: 20040213
  2. PAROXETINE HCL [Concomitant]

REACTIONS (1)
  - ENURESIS [None]
